FAERS Safety Report 23098024 (Version 1)
Quarter: 2023Q4

REPORT INFORMATION
  Report Type: Spontaneous
  Country: US (occurrence: None)
  Receive Date: 20231020
  Receipt Date: 20231020
  Transmission Date: 20240110
  Serious: Yes (Hospitalization)
  Sender: FDA-Public Use
  Company Number: None

PATIENT
  Age: 77 Year
  Sex: Male
  Weight: 72.5 kg

DRUGS (1)
  1. AMITRIPTYLINE HYDROCHLORIDE [Suspect]
     Active Substance: AMITRIPTYLINE HYDROCHLORIDE
     Route: 048
     Dates: start: 20181206, end: 20221221

REACTIONS (10)
  - Hypertensive encephalopathy [None]
  - Infection [None]
  - Delirium [None]
  - Serotonin syndrome [None]
  - Sepsis [None]
  - Seizure [None]
  - Encephalitis [None]
  - Toxic encephalopathy [None]
  - Somnolence [None]
  - Anticholinergic syndrome [None]

NARRATIVE: CASE EVENT DATE: 20221219
